FAERS Safety Report 18679505 (Version 1)
Quarter: 2020Q4

REPORT INFORMATION
  Report Type: Spontaneous
  Country: CN (occurrence: CN)
  Receive Date: 20201229
  Receipt Date: 20201229
  Transmission Date: 20210114
  Serious: Yes (Hospitalization)
  Sender: FDA-Public Use
  Company Number: CN-BAYER-2020-283650

PATIENT
  Age: 63 Year
  Sex: Male

DRUGS (2)
  1. NEXAVAR [Suspect]
     Active Substance: SORAFENIB
     Indication: HEPATIC CANCER
     Dosage: 400 MG, BID
     Route: 048
     Dates: start: 201710, end: 2019
  2. STIVARGA [Suspect]
     Active Substance: REGORAFENIB
     Indication: HEPATIC CANCER
     Dosage: 160 MG, QD
     Route: 048
     Dates: start: 201907

REACTIONS (9)
  - Palmar-plantar erythrodysaesthesia syndrome [Recovered/Resolved]
  - Rash [None]
  - Pain of skin [None]
  - Hypertension [Recovered/Resolved]
  - Diarrhoea [Recovered/Resolved]
  - Palmar-plantar erythrodysaesthesia syndrome [None]
  - Asthenia [Recovered/Resolved]
  - Pancreatitis acute [None]
  - Haematotoxicity [Recovered/Resolved]

NARRATIVE: CASE EVENT DATE: 201710
